FAERS Safety Report 5300210-5 (Version None)
Quarter: 2007Q2

REPORT INFORMATION
  Report Type: 
  Country: None (occurrence: None)
  Receive Date: 20070411
  Receipt Date: 20070404
  Transmission Date: 20071010
  Serious: Yes (Hospitalization)
  Sender: FDA-Public Use
  Company Number: 6031783

PATIENT
  Age: 45 Year
  Sex: Female

DRUGS (3)
  1. BISOPROLOL FUMARATE [Suspect]
     Indication: TACHYCARDIA
     Dosage: ORAL
     Route: 048
  2. XANAX [Suspect]
     Indication: DRUG USE FOR UNKNOWN INDICATION
     Dosage: ORAL
     Route: 048
  3. VERATRAN (CLOTIAZEPAM) [Suspect]
     Indication: DRUG USE FOR UNKNOWN INDICATION
     Dosage: ORAL
     Dates: start: 20060201, end: 20060801

REACTIONS (9)
  - ARTHRALGIA [None]
  - DEPRESSION [None]
  - DRUG INEFFECTIVE [None]
  - FATIGUE [None]
  - GASTROENTERITIS [None]
  - HAEMOCHROMATOSIS [None]
  - HEPATITIS [None]
  - INFLUENZA [None]
  - MYALGIA [None]
